FAERS Safety Report 15989229 (Version 1)
Quarter: 2019Q1

REPORT INFORMATION
  Report Type: Spontaneous
  Country: US (occurrence: US)
  Receive Date: 20190221
  Receipt Date: 20190221
  Transmission Date: 20190418
  Serious: No
  Sender: FDA-Public Use
  Company Number: US-BAYER-2019-036873

PATIENT
  Sex: Female

DRUGS (2)
  1. DULCOLAX (BISACODYL) [Suspect]
     Active Substance: BISACODYL
  2. MIRALAX [Suspect]
     Active Substance: POLYETHYLENE GLYCOL 3350
     Indication: GASTROINTESTINAL DISORDER
     Dosage: UNK ,ONCE , QD
     Route: 048

REACTIONS (3)
  - Drug ineffective [Unknown]
  - Product use issue [Unknown]
  - Abdominal symptom [Unknown]
